FAERS Safety Report 4463383-2 (Version None)
Quarter: 2004Q3

REPORT INFORMATION
  Report Type: 
  Country: None (occurrence: None)
  Receive Date: 20040928
  Receipt Date: 20040909
  Transmission Date: 20050211
  Serious: Yes (Hospitalization)
  Sender: FDA-Public Use
  Company Number: B0345108A

PATIENT
  Age: 34 Year
  Sex: Male

DRUGS (8)
  1. EPIVIR [Suspect]
  2. RETROVIR [Suspect]
  3. CLINDAMYCIN [Concomitant]
  4. PYRIMETHAMINE TAB [Concomitant]
  5. TENOFOVIR [Concomitant]
  6. EFAVIRENZ [Concomitant]
  7. DAPSONE [Concomitant]
  8. LOPINAVIR + RITONAVIR (FORMULATION UNKNOWN) (LOPINAVIR + RITONAVIR) [Suspect]

REACTIONS (6)
  - DRUG TOXICITY [None]
  - EOSINOPHILIA [None]
  - HEPATITIS [None]
  - IMMUNE RECONSTITUTION SYNDROME [None]
  - LUNG NEOPLASM [None]
  - STRONGYLOIDIASIS [None]
